FAERS Safety Report 9330488 (Version 1)
Quarter: 2013Q2

REPORT INFORMATION
  Report Type: Spontaneous
  Country: CA (occurrence: CA)
  Receive Date: 20130605
  Receipt Date: 20130605
  Transmission Date: 20140414
  Serious: Yes (Other)
  Sender: FDA-Public Use
  Company Number: CA-AMGEN-CANSP2013017999

PATIENT
  Age: 76 Year
  Sex: Female
  Weight: 72.73 kg

DRUGS (2)
  1. PROLIA [Suspect]
     Indication: OSTEOPOROSIS POSTMENOPAUSAL
     Dosage: UNK
     Dates: start: 20120425, end: 201210
  2. PROLIA [Suspect]

REACTIONS (5)
  - Bone loss [Unknown]
  - Oral infection [Recovered/Resolved]
  - Dry mouth [Unknown]
  - Lip dry [Unknown]
  - Discomfort [Unknown]
